FAERS Safety Report 14653492 (Version 1)
Quarter: 2018Q1

REPORT INFORMATION
  Report Type: Spontaneous
  Country: IE (occurrence: IE)
  Receive Date: 20180319
  Receipt Date: 20180319
  Transmission Date: 20180509
  Serious: Yes (Other)
  Sender: FDA-Public Use
  Company Number: IE-VELOXIS PHARMACEUTICALS-2044048

PATIENT
  Age: 37 Year
  Sex: Female

DRUGS (10)
  1. HYDROXYCHLOROQUINE [Suspect]
     Active Substance: HYDROXYCHLOROQUINE
  2. COTRIMOXAZOLE [Concomitant]
     Active Substance: SULFAMETHOXAZOLE\TRIMETHOPRIM
  3. EFAVIRENZ. [Concomitant]
     Active Substance: EFAVIRENZ
  4. TRIAMCINOLONE [Suspect]
     Active Substance: TRIAMCINOLONE
  5. PREDNISOLONE. [Suspect]
     Active Substance: PREDNISOLONE
     Route: 048
  6. FLUCONAZOLE. [Concomitant]
     Active Substance: FLUCONAZOLE
  7. LAMIVUDINE AND ZIDOVUDINE [Concomitant]
     Active Substance: LAMIVUDINE\ZIDOVUDINE
  8. METHOTREXATE. [Suspect]
     Active Substance: METHOTREXATE
  9. ENVARSUS XR [Suspect]
     Active Substance: TACROLIMUS
     Indication: SARCOIDOSIS
  10. CLOBETASOL PROPIONATE. [Suspect]
     Active Substance: CLOBETASOL PROPIONATE

REACTIONS (5)
  - Intentional product use issue [Unknown]
  - Leukopenia [Unknown]
  - Drug ineffective [Unknown]
  - Cushingoid [Unknown]
  - Skin atrophy [Unknown]
